FAERS Safety Report 5117446-9 (Version None)
Quarter: 2006Q3

REPORT INFORMATION
  Report Type: 
  Country: None (occurrence: None)
  Receive Date: 20060929
  Receipt Date: 20060523
  Transmission Date: 20061208
  Serious: Yes (Hospitalization)
  Sender: FDA-Public Use
  Company Number: US-BRISTOL-MYERS SQUIBB COMPANY-13386560

PATIENT
  Age: 53 Year
  Sex: Female
  Weight: 84 kg

DRUGS (16)
  1. ETOPOSIDE [Suspect]
     Indication: ACUTE MYELOID LEUKAEMIA
  2. CYTARABINE [Suspect]
     Indication: ACUTE MYELOID LEUKAEMIA
  3. MITOXANTRONE [Suspect]
     Indication: ACUTE MYELOID LEUKAEMIA
  4. CEP-701 [Suspect]
     Indication: ACUTE MYELOID LEUKAEMIA
     Dates: start: 20060327, end: 20060501
  5. ZOFRAN [Concomitant]
     Dates: start: 20060410
  6. SINGULAIR [Concomitant]
     Dates: start: 19980101
  7. ATROVENT [Concomitant]
     Dates: start: 19970101
  8. WELLBUTRIN [Concomitant]
     Dates: start: 20051201
  9. LEXAPRO [Concomitant]
     Dates: start: 20030101
  10. LEVOXYL [Concomitant]
  11. NEXIUM [Concomitant]
  12. PROAMATINE [Concomitant]
     Indication: ORTHOSTATIC HYPOTENSION
     Dates: start: 20050101
  13. LEVAQUIN [Concomitant]
     Dates: start: 20060312
  14. COMPAZINE [Concomitant]
     Dates: start: 20060207
  15. FLORINEF [Concomitant]
     Indication: ORTHOSTATIC HYPOTENSION
     Dates: start: 20030101
  16. ADVAIR DISKUS 100/50 [Concomitant]
     Dates: start: 20030101

REACTIONS (3)
  - CARDIAC FAILURE [None]
  - CARDIOMEGALY [None]
  - EJECTION FRACTION DECREASED [None]
